FAERS Safety Report 7721794-3 (Version None)
Quarter: 2011Q3

REPORT INFORMATION
  Report Type: 
  Country: None (occurrence: None)
  Receive Date: 20110825
  Receipt Date: 20110823
  Transmission Date: 20111222
  Serious: Yes (Death, Life-Threatening)
  Sender: FDA-Public Use
  Company Number: 15961824

PATIENT
  Age: 82 Year
  Sex: Female

DRUGS (5)
  1. COUMADIN [Suspect]
     Indication: PULMONARY EMBOLISM
     Dosage: 36.25 MILLIGRAM 1 WEEK, ORAL
     Route: 048
     Dates: start: 20090812
  2. DEPAKINE SHRONO (SODIUM VALPROATE) [Concomitant]
  3. FUROSEMIDE [Concomitant]
  4. ZANEDIP (LERCANIDI;PINE HCL) [Concomitant]
  5. ZOLOFT [Concomitant]

REACTIONS (1)
  - CEREBRAL HAEMORRHAGE [None]
